FAERS Safety Report 10150276 (Version 3)
Quarter: 2014Q2

REPORT INFORMATION
  Report Type: Report from Study
  Country: US (occurrence: US)
  Receive Date: 20140502
  Receipt Date: 20140521
  Transmission Date: 20141212
  Serious: Yes (Hospitalization)
  Sender: FDA-Public Use
  Company Number: US-ACTELION-A-US2014-93285

PATIENT
  Age: 56 Year
  Sex: Female

DRUGS (4)
  1. VENTAVIS [Suspect]
     Indication: PULMONARY ARTERIAL HYPERTENSION
     Dosage: UNK
     Route: 055
     Dates: start: 20131105
  2. ADCIRCA [Concomitant]
  3. LETAIRIS [Concomitant]
  4. METHADONE [Concomitant]

REACTIONS (6)
  - Substance abuse [Unknown]
  - Pulmonary arterial hypertension [Not Recovered/Not Resolved]
  - Dyspnoea [Not Recovered/Not Resolved]
  - Toe amputation [Unknown]
  - Treatment noncompliance [Unknown]
  - Oedema [Unknown]
